FAERS Safety Report 9007181 (Version 2)
Quarter: 2013Q1

REPORT INFORMATION
  Report Type: Spontaneous
  Country: GB (occurrence: GB)
  Receive Date: 20130110
  Receipt Date: 20130124
  Transmission Date: 20140127
  Serious: Yes (Life-Threatening)
  Sender: FDA-Public Use
  Company Number: GB-JNJFOC-20130103062

PATIENT
  Age: 10 Year
  Sex: Female
  Weight: 22 kg

DRUGS (3)
  1. CALPOL SIXPLUS [Suspect]
     Route: 048
  2. CALPOL SIXPLUS [Suspect]
     Indication: PRODUCT USED FOR UNKNOWN INDICATION
     Route: 048
     Dates: start: 20121227, end: 20121227
  3. CALPROFEN [Concomitant]
     Route: 065

REACTIONS (1)
  - Anaphylactic reaction [Recovered/Resolved]
